FAERS Safety Report 17559147 (Version 3)
Quarter: 2020Q2

REPORT INFORMATION
  Report Type: Report from Study
  Country: None (occurrence: US)
  Receive Date: 20200319
  Receipt Date: 20200413
  Transmission Date: 20200713
  Serious: Yes (Other)
  Sender: FDA-Public Use
  Company Number: US-ABBVIE-20P-163-3319265-00

PATIENT
  Sex: Male

DRUGS (1)
  1. IMBRUVICA [Suspect]
     Active Substance: IBRUTINIB
     Indication: B-CELL SMALL LYMPHOCYTIC LYMPHOMA
     Route: 048
     Dates: start: 20191205

REACTIONS (6)
  - Sputum discoloured [Unknown]
  - Pneumonia [Unknown]
  - Extrasystoles [Unknown]
  - Therapeutic product effect decreased [Unknown]
  - Oedema [Unknown]
  - Blood pressure decreased [Unknown]
